FAERS Safety Report 10402497 (Version 1)
Quarter: 2014Q3

REPORT INFORMATION
  Report Type: Spontaneous
  Country: US (occurrence: None)
  Receive Date: 20140821
  Receipt Date: 20140821
  Transmission Date: 20150326
  Serious: Yes (Other)
  Sender: FDA-Public Use
  Company Number: None

PATIENT
  Age: 41 Year
  Sex: Female
  Weight: 68.04 kg

DRUGS (2)
  1. CERTOLIZUMAB [Suspect]
     Active Substance: CERTOLIZUMAB
     Indication: ANKYLOSING SPONDYLITIS
     Dosage: 200 MG  Q 2 WEEKS, GIVEN INTO/UNDER THE SKIN
     Dates: start: 20140102
  2. CERTOLIZUMAB [Suspect]
     Active Substance: CERTOLIZUMAB
     Indication: CROHN^S DISEASE
     Dosage: 200 MG  Q 2 WEEKS, GIVEN INTO/UNDER THE SKIN
     Dates: start: 20140102

REACTIONS (1)
  - Herpes zoster [None]

NARRATIVE: CASE EVENT DATE: 20140819
